FAERS Safety Report 6152043-8 (Version None)
Quarter: 2009Q2

REPORT INFORMATION
  Report Type: 
  Country: None (occurrence: None)
  Receive Date: 20090408
  Receipt Date: 20090325
  Transmission Date: 20091009
  Serious: Yes (Hospitalization)
  Sender: FDA-Public Use
  Company Number: 2009BM000005

PATIENT
  Sex: Female
  Weight: 24 kg

DRUGS (2)
  1. NAGLAZYME [Suspect]
     Indication: MUCOPOLYSACCHARIDOSIS VI
     Dosage: 4 VIALS; QW; IVDRIP
     Route: 041
     Dates: start: 20070917, end: 20090101
  2. NAGLAZYME [Suspect]
     Indication: MUCOPOLYSACCHARIDOSIS VI
     Dosage: 4 VIALS; QW; IVDRIP
     Route: 041
     Dates: start: 20090128

REACTIONS (3)
  - HEART VALVE REPLACEMENT [None]
  - PNEUMONIA [None]
  - POST PROCEDURAL INFECTION [None]
